FAERS Safety Report 16662982 (Version 1)
Quarter: 2019Q3

REPORT INFORMATION
  Report Type: Report from Study
  Country: US (occurrence: US)
  Receive Date: 20190802
  Receipt Date: 20190802
  Transmission Date: 20191004
  Serious: No
  Sender: FDA-Public Use
  Company Number: US-EXELIXIS-CABO-19020581

PATIENT
  Age: 65 Year
  Sex: Female

DRUGS (4)
  1. LEVOTHYROXINE. [Concomitant]
     Active Substance: LEVOTHYROXINE
  2. CIPROFLOXACIN. [Concomitant]
     Active Substance: CIPROFLOXACIN
  3. CABOMETYX [Suspect]
     Active Substance: CABOZANTINIB S-MALATE
     Indication: METASTASES TO BONE
     Dosage: 20 MG, QD
     Route: 048
     Dates: start: 20190207
  4. AMLODIPINE [Concomitant]
     Active Substance: AMLODIPINE BESYLATE

REACTIONS (6)
  - Nasopharyngitis [Not Recovered/Not Resolved]
  - Skin exfoliation [Unknown]
  - Nausea [Unknown]
  - Diarrhoea [Recovered/Resolved]
  - Off label use [Unknown]
  - Skin discolouration [Unknown]

NARRATIVE: CASE EVENT DATE: 201904
